FAERS Safety Report 9679157 (Version 1)
Quarter: 2013Q4

REPORT INFORMATION
  Report Type: Spontaneous
  Country: GB (occurrence: None)
  Receive Date: 20131107
  Receipt Date: 20131107
  Transmission Date: 20140711
  Serious: Yes (Life-Threatening, Hospitalization, Other)
  Sender: FDA-Public Use
  Company Number: 2013-003472

PATIENT
  Age: 17 Year
  Sex: Female
  Weight: 55 kg

DRUGS (2)
  1. SARAFEM [Suspect]
     Indication: DEPRESSION
     Dosage: QHS
     Route: 048
     Dates: start: 20130812, end: 20131002
  2. OXYTETRACYCLINE (OXYTETRACYCLINE) [Concomitant]

REACTIONS (6)
  - Depersonalisation [None]
  - Abnormal behaviour [None]
  - Disinhibition [None]
  - Overdose [None]
  - Drug ineffective [None]
  - Pyromania [None]
